FAERS Safety Report 4768790-6 (Version None)
Quarter: 2005Q3

REPORT INFORMATION
  Report Type: 
  Country: None (occurrence: None)
  Receive Date: 20050914
  Receipt Date: 20050907
  Transmission Date: 20060218
  Serious: Yes (Hospitalization, Other)
  Sender: FDA-Public Use
  Company Number: US-BRISTOL-MYERS SQUIBB COMPANY-13103395

PATIENT
  Age: 55 Year
  Sex: Female
  Weight: 143 kg

DRUGS (4)
  1. CETUXIMAB [Suspect]
     Indication: OESOPHAGEAL CARCINOMA
     Dosage: 1ST TX: 15-AUG-05 (400 MG/M2/D1) THEN ON DAYS 8,15,22,29 AND 36. 1604MG TOTAL DOSE PRIOR TO EVENT.
     Route: 042
     Dates: start: 20050902, end: 20050902
  2. PACLITAXEL [Suspect]
     Indication: OESOPHAGEAL CARCINOMA
     Dosage: 1ST TX: 15-AUG-05 (50MG/M2 WEEKLY X 6).  TOTAL DOSE PRIOR TO EVENT: 264 MG.
     Route: 042
     Dates: start: 20050902, end: 20050902
  3. CARBOPLATIN [Suspect]
     Indication: OESOPHAGEAL CARCINOMA
     Dosage: 1ST TX: 15-AUG-05 (AUC 2 WEEKLY X 6).  TOTAL DOSE PRIOR TO EVENT: 678 MG.
     Route: 042
     Dates: start: 20050902, end: 20050902
  4. RADIATION THERAPY [Suspect]
     Indication: OESOPHAGEAL CARCINOMA
     Dosage: RADIATION (EXTERNAL BEAM) 1.8 GY DAILY X 28 DAYS.  TOTAL DOSE PRIOR TO EVENT: 27.0 GY.
     Dates: start: 20050902, end: 20050902

REACTIONS (2)
  - DEHYDRATION [None]
  - NEUTROPENIA [None]
